FAERS Safety Report 18015807 (Version 1)
Quarter: 2020Q3

REPORT INFORMATION
  Report Type: Spontaneous
  Country: US (occurrence: US)
  Receive Date: 20200713
  Receipt Date: 20200713
  Transmission Date: 20201103
  Serious: Yes (Other)
  Sender: FDA-Public Use
  Company Number: US-PFIZER INC-2020264325

PATIENT
  Age: 68 Year
  Sex: Male
  Weight: 80 kg

DRUGS (7)
  1. SUFENTANIL CITRATE. [Suspect]
     Active Substance: SUFENTANIL CITRATE
     Indication: GENERAL ANAESTHESIA
     Dosage: 120 UG (1.5 UG/KG), SINGLE
  2. VECURONIUM [Concomitant]
     Active Substance: VECURONIUM BROMIDE
     Indication: NEUROMUSCULAR BLOCKADE
     Dosage: 0.1 MG/KG
     Route: 042
  3. OXYGEN. [Concomitant]
     Active Substance: OXYGEN
     Dosage: 100 %
  4. NEOSTIGMINE. [Concomitant]
     Active Substance: NEOSTIGMINE METHYLSULFATE
     Indication: NEUROMUSCULAR BLOCKADE REVERSAL
     Dosage: 5.0 MG
     Route: 042
  5. ATROPINE. [Concomitant]
     Active Substance: ATROPINE
     Indication: NEUROMUSCULAR BLOCKADE REVERSAL
     Dosage: 2.0 MG
  6. THIOPENTAL [Concomitant]
     Active Substance: THIOPENTAL
     Dosage: 100 MG (1.25 MG/KG)
     Route: 042
  7. NITROUS OXIDE\OXYGEN [Concomitant]
     Active Substance: NITROUS OXIDE\OXYGEN
     Indication: ANAESTHESIA
     Dosage: UNK (65% N20/35% 02)

REACTIONS (2)
  - Drug level increased [Recovering/Resolving]
  - Respiratory depression [Not Recovered/Not Resolved]
